FAERS Safety Report 10905957 (Version 5)
Quarter: 2015Q2

REPORT INFORMATION
  Report Type: Spontaneous
  Country: US (occurrence: US)
  Receive Date: 20150311
  Receipt Date: 20150414
  Transmission Date: 20150821
  Serious: Yes (Hospitalization)
  Sender: FDA-Public Use
  Company Number: US-GLAXOSMITHKLINE-US2015GSK017593

PATIENT
  Sex: Female

DRUGS (12)
  1. LUNESTA [Concomitant]
     Active Substance: ESZOPICLONE
  2. XANAX [Concomitant]
     Active Substance: ALPRAZOLAM
  3. TANZEUM [Suspect]
     Active Substance: ALBIGLUTIDE
     Indication: TYPE 2 DIABETES MELLITUS
     Dosage: 30 MG, WE
     Route: 042
     Dates: start: 20150113
  4. INSULIN LEVEMIR [Concomitant]
  5. METOPROLOL [Concomitant]
     Active Substance: METOPROLOL
  6. CRESTOR [Concomitant]
     Active Substance: ROSUVASTATIN CALCIUM
  7. MELATONIN [Concomitant]
     Active Substance: MELATONIN
  8. LISINOPRIL. [Concomitant]
     Active Substance: LISINOPRIL
  9. EFFEXOR [Concomitant]
     Active Substance: VENLAFAXINE HYDROCHLORIDE
  10. LANSOPRAZOLE. [Concomitant]
     Active Substance: LANSOPRAZOLE
  11. TANZEUM [Suspect]
     Active Substance: ALBIGLUTIDE
     Indication: GLYCOSYLATED HAEMOGLOBIN INCREASED
     Dosage: 30 MG, WE
     Route: 042
  12. NEURONTIN [Concomitant]
     Active Substance: GABAPENTIN

REACTIONS (12)
  - Injection site erythema [Unknown]
  - Diarrhoea [Recovered/Resolved]
  - Fall [Recovering/Resolving]
  - Ankle fracture [Recovering/Resolving]
  - Injection site swelling [Unknown]
  - Vomiting [Recovered/Resolved]
  - Adverse drug reaction [Unknown]
  - Product quality issue [Unknown]
  - Ankle operation [Recovering/Resolving]
  - Underdose [Unknown]
  - Exposure via direct contact [Unknown]
  - Nausea [Recovered/Resolved]
